FAERS Safety Report 4645332-7 (Version None)
Quarter: 2005Q2

REPORT INFORMATION
  Report Type: 
  Country: None (occurrence: None)
  Receive Date: 20050331
  Receipt Date: 20041221
  Transmission Date: 20051028
  Serious: Yes (Hospitalization)
  Sender: FDA-Public Use
  Company Number: 04P-163-0284209-00

PATIENT
  Age: 81 Year
  Sex: Female

DRUGS (8)
  1. HUMIRA [Suspect]
     Indication: RHEUMATOID ARTHRITIS
     Dosage: 40 MG, 1 IN 2 WK, SUBCUTANEOUS
     Route: 058
     Dates: start: 20030101, end: 20041201
  2. FORTEO [Concomitant]
  3. VICODIN [Concomitant]
  4. DIAZEPAM [Concomitant]
  5. AMLODIPINE BESYLATE [Concomitant]
  6. METFORMIN [Concomitant]
  7. QUINAPRIL HCL [Concomitant]
  8. CELECOXIB [Concomitant]

REACTIONS (2)
  - PERICARDIAL EFFUSION [None]
  - PLEURAL EFFUSION [None]
